FAERS Safety Report 7674306-7 (Version None)
Quarter: 2011Q3

REPORT INFORMATION
  Report Type: 
  Country: None (occurrence: None)
  Receive Date: 20110810
  Receipt Date: 20110121
  Transmission Date: 20111222
  Serious: No
  Sender: FDA-Public Use
  Company Number: US-BAUSCH-2011BL001493

PATIENT
  Sex: Female

DRUGS (2)
  1. CROMOLYN SODIUM [Suspect]
     Indication: HYPERSENSITIVITY
     Route: 045
     Dates: start: 20110101, end: 20110121
  2. CLARITIN /USA/ [Concomitant]

REACTIONS (3)
  - EPISTAXIS [None]
  - NASAL INFLAMMATION [None]
  - NASAL DRYNESS [None]
